FAERS Safety Report 5264142-3 (Version None)
Quarter: 2007Q1

REPORT INFORMATION
  Report Type: 
  Country: None (occurrence: None)
  Receive Date: 20070309
  Receipt Date: 20070226
  Transmission Date: 20070707
  Serious: Yes (Other)
  Sender: FDA-Public Use
  Company Number: GXKR2007NL02157

PATIENT
  Age: 44 Year
  Sex: Female
  Weight: 55 kg

DRUGS (1)
  1. OMEPRAZOLE (NGX)(OMEPRAZOLE) CAPSULE [Suspect]
     Indication: DYSPEPSIA
     Dosage: 20 MG, ORAL
     Route: 048
     Dates: start: 20060801, end: 20070102

REACTIONS (5)
  - AXILLARY PAIN [None]
  - DRY MOUTH [None]
  - DYSPHAGIA [None]
  - NASAL CONGESTION [None]
  - TONSILLITIS [None]
